FAERS Safety Report 7343113-7 (Version None)
Quarter: 2011Q1

REPORT INFORMATION
  Report Type: 
  Country: None (occurrence: None)
  Receive Date: 20110302
  Receipt Date: 20110209
  Transmission Date: 20110831
  Serious: Yes (Other)
  Sender: FDA-Public Use
  Company Number: 2280705-2011-0009

PATIENT
  Sex: Female

DRUGS (1)
  1. ORAJEL MAXIMUM STRENGTH ORAL PAIN RELIEVER [Suspect]
     Dosage: ORAL APPLICATION
     Route: 048

REACTIONS (2)
  - OEDEMA MOUTH [None]
  - DYSPNOEA [None]
